FAERS Safety Report 7631597-6 (Version None)
Quarter: 2011Q3

REPORT INFORMATION
  Report Type: 
  Country: None (occurrence: None)
  Receive Date: 20110725
  Receipt Date: 20110113
  Transmission Date: 20111222
  Serious: No
  Sender: FDA-Public Use
  Company Number: US-BRISTOL-MYERS SQUIBB COMPANY-15485493

PATIENT
  Age: 62 Year
  Sex: Male
  Weight: 70 kg

DRUGS (8)
  1. EFFEXOR [Concomitant]
  2. REQUIP [Concomitant]
  3. TEMAZEPAM [Concomitant]
  4. FISH OIL [Concomitant]
  5. VICODIN [Concomitant]
  6. VITAMIN D [Concomitant]
  7. ZYPREXA [Concomitant]
  8. COUMADIN [Suspect]
     Indication: THROMBOSIS
     Dosage: ALSO TAKEN AS CONMED

REACTIONS (1)
  - PAIN [None]
